FAERS Safety Report 21379354 (Version 1)
Quarter: 2022Q3

REPORT INFORMATION
  Report Type: Other
  Country: GB (occurrence: GB)
  Receive Date: 20220927
  Receipt Date: 20220927
  Transmission Date: 20221027
  Serious: Yes (Hospitalization)
  Sender: FDA-Public Use
  Company Number: GB-MACLEODS PHARMA EU LTD-MAC2022037343

PATIENT

DRUGS (22)
  1. CLOPIDOGREL [Suspect]
     Active Substance: CLOPIDOGREL BISULFATE
     Indication: Product used for unknown indication
     Dosage: UNK
     Route: 065
  2. EDOXABAN [Suspect]
     Active Substance: EDOXABAN
     Indication: Product used for unknown indication
     Dosage: 1 DOSAGE FORM, QD (OM, ONE TO BE TAKEN EACH DAY, SUSPENDED ON ADMISSION)
     Route: 065
     Dates: start: 20220624
  3. FUROSEMIDE [Concomitant]
     Active Substance: FUROSEMIDE
     Indication: Product used for unknown indication
     Dosage: 1 DOSAGE FORM, QD (OM, ONE TO BE TAKEN EACH MORNING, SUSPENDED ON ADMISSION)
     Route: 065
  4. FINASTERIDE [Concomitant]
     Active Substance: FINASTERIDE
     Indication: Product used for unknown indication
     Dosage: 1 DOSAGE FORM, QD (ONE TO BE TAKEN EACH DAY OM , SUSPENDED ON ADMISSION)
     Route: 065
  5. LANSOPRAZOLE [Concomitant]
     Active Substance: LANSOPRAZOLE
     Indication: Product used for unknown indication
     Dosage: 1 DOSAGE FORM, QD  (GASTRO-RESISTANT CAPSULES, ONE TO BE TAKEN EACH MORNING)
     Route: 065
  6. DOCUSATE [Concomitant]
     Active Substance: DOCUSATE
     Indication: Product used for unknown indication
     Dosage: 2 DOSAGE FORM, BID  (TWO TO BE TAKEN TWICE A DAY)
     Route: 065
  7. BISOPROLOL [Concomitant]
     Active Substance: BISOPROLOL
     Indication: Product used for unknown indication
     Dosage: 1 DOSAGE FORM, BID (ONE TO BE TAKEN TWICE A DAY)
     Route: 065
  8. ATORVASTATIN [Concomitant]
     Active Substance: ATORVASTATIN
     Indication: Product used for unknown indication
     Dosage: 1 DOSAGE FORM, QD (ONE TO BE TAKEN AT NIGHT, SUSPENDED ON ADMISSION)
     Route: 065
  9. CLONAZEPAM [Concomitant]
     Active Substance: CLONAZEPAM
     Indication: Product used for unknown indication
     Dosage: 0.5 DOSAGE FORM, QD (250MCG ON, HALF A TABLET AT NIGHT, INCREASED BY GP 01/08; INCREASED ON ADMISSIO
     Route: 065
  10. SINEMET CR [Concomitant]
     Active Substance: CARBIDOPA\LEVODOPA
     Indication: Product used for unknown indication
     Dosage: 1 DOSAGE FORM, QD (ONE TO BE TAKEN AT NIGHT)
     Route: 065
  11. METFORMIN [Concomitant]
     Active Substance: METFORMIN HYDROCHLORIDE
     Indication: Product used for unknown indication
     Dosage: 1 DOSAGE FORM, TID (TAKE ONE TABLET THREE TIMES A DAY)
     Route: 065
  12. METFORMIN [Concomitant]
     Active Substance: METFORMIN HYDROCHLORIDE
     Dosage: 500 MILLIGRAM (TDS)
     Route: 065
  13. CARBIDOPA\LEVODOPA [Concomitant]
     Active Substance: CARBIDOPA\LEVODOPA
     Indication: Product used for unknown indication
     Dosage: 1 DOSAGE FORM, QID (ONE TO BE TAKEN FOUR TIMES A DAY 8AM, 12PM, 4PM, 8PM)
     Route: 065
  14. CARBIDOPA\LEVODOPA [Concomitant]
     Active Substance: CARBIDOPA\LEVODOPA
     Dosage: UNK, QD (ON)
     Route: 065
  15. CARBIDOPA\LEVODOPA [Concomitant]
     Active Substance: CARBIDOPA\LEVODOPA
     Dosage: UNK, QID  (QDS)
     Route: 065
  16. NITROFURANTOIN [Concomitant]
     Active Substance: NITROFURANTOIN
     Indication: Prophylaxis urinary tract infection
     Dosage: 1 DOSAGE FORM, QD (ONE TO BE TAKEN AT NIGHT)
     Route: 065
  17. INSULIN ASPART [Concomitant]
     Active Substance: INSULIN ASPART
     Indication: Product used for unknown indication
     Dosage: UNK (100 UNITS/ML), 3ML PRE-FILLED PENS, UP TO 10 MINUTES BEFORE OR SOON AFTER A MEAL
     Route: 058
  18. INSULIN ASPART [Concomitant]
     Active Substance: INSULIN ASPART
     Dosage: UNK, BID, 5 PRE-FILLED DISPOSABLE INJECTION - 20 UNITS BD MORNING AND TEATIME
     Route: 065
  19. SENNA [Concomitant]
     Active Substance: SENNA LEAF\SENNOSIDES\SENNOSIDES A AND B
     Indication: Product used for unknown indication
     Dosage: 2 DOSAGE FORM, QD (TWO TO BE TAKEN AT NIGHT)
     Route: 065
  20. MAGNASPARTATE [Concomitant]
     Indication: Product used for unknown indication
     Dosage: 10 MMOL/L, BID (FOR 3/7)
     Route: 065
  21. Ensure Plus Juce liquid [Concomitant]
     Indication: Product used for unknown indication
     Dosage: 1 DOSAGE FORM, BID, (MILKSHAKE OR JUICE)
     Route: 065
     Dates: start: 20220624
  22. Ensure Plus milkshake style liquid [Concomitant]
     Indication: Product used for unknown indication
     Dosage: 1 DOSAGE FORM, BID, (MILKSHAKE OR JUICE),
     Route: 065

REACTIONS (1)
  - Haematuria [Unknown]

NARRATIVE: CASE EVENT DATE: 20220725
